FAERS Safety Report 6282328-6 (Version None)
Quarter: 2009Q3

REPORT INFORMATION
  Report Type: 
  Country: None (occurrence: None)
  Receive Date: 20090724
  Receipt Date: 20090716
  Transmission Date: 20100115
  Serious: Yes (Hospitalization)
  Sender: FDA-Public Use
  Company Number: US-JNJCH-2009019544

PATIENT
  Age: 81 Year
  Sex: Female
  Weight: 65.3 kg

DRUGS (1)
  1. ROGAINE [Suspect]
     Indication: ALOPECIA
     Route: 061

REACTIONS (2)
  - ALOPECIA [None]
  - HOSPITALISATION [None]
